FAERS Safety Report 6522778-3 (Version None)
Quarter: 2009Q4

REPORT INFORMATION
  Report Type: 
  Country: None (occurrence: None)
  Receive Date: 20091230
  Receipt Date: 20091221
  Transmission Date: 20100525
  Serious: Yes (Other)
  Sender: FDA-Public Use
  Company Number: US-ABBOTT-09P-163-0615675-00

PATIENT
  Sex: Male
  Weight: 87.168 kg

DRUGS (1)
  1. TRICOR [Suspect]
     Indication: BLOOD CHOLESTEROL INCREASED
     Dates: start: 20090130, end: 20091201

REACTIONS (4)
  - HYDRONEPHROSIS [None]
  - MUSCULOSKELETAL PAIN [None]
  - PROSTATE CANCER [None]
  - URINARY RETENTION [None]
